FAERS Safety Report 20805007 (Version 1)
Quarter: 2022Q2

REPORT INFORMATION
  Report Type: Report from Study
  Country: US (occurrence: US)
  Receive Date: 20220509
  Receipt Date: 20220509
  Transmission Date: 20220720
  Serious: Yes (Hospitalization)
  Sender: FDA-Public Use
  Company Number: US-BAYER-2022A064038

PATIENT
  Age: 47 Year
  Sex: Female

DRUGS (1)
  1. STIVARGA [Suspect]
     Active Substance: REGORAFENIB
     Indication: Colon cancer
     Dosage: 160 MG, QD (21 DAYS ON, 7 DAYS OFF)
     Route: 048
     Dates: start: 20220419, end: 20220502

REACTIONS (2)
  - Vomiting [None]
  - Dehydration [None]
